FAERS Safety Report 6963964-8 (Version None)
Quarter: 2010Q3

REPORT INFORMATION
  Report Type: 
  Country: None (occurrence: None)
  Receive Date: 20100902
  Receipt Date: 20100902
  Transmission Date: 20110219
  Serious: Yes (Life-Threatening, Hospitalization)
  Sender: FDA-Public Use
  Company Number: None

PATIENT
  Sex: Male
  Weight: 99.7913 kg

DRUGS (1)
  1. LISINOPRIL AND HYDROCHLOROTHIAZIDE [Suspect]
     Indication: HYPERTENSION
     Dosage: 20/25 MG 1/DAY ORAL
     Route: 048
     Dates: start: 20090329, end: 20100329

REACTIONS (2)
  - PHARYNGEAL OEDEMA [None]
  - SWOLLEN TONGUE [None]
